FAERS Safety Report 25423853 (Version 1)
Quarter: 2025Q2

REPORT INFORMATION
  Report Type: Spontaneous
  Country: US (occurrence: None)
  Receive Date: 20250610
  Receipt Date: 20250610
  Transmission Date: 20250717
  Serious: No
  Sender: FDA-CTU
  Company Number: None

PATIENT

DRUGS (1)
  1. SIMPONI [Suspect]
     Active Substance: GOLIMUMAB

REACTIONS (9)
  - Dyspnoea [None]
  - Therapy interrupted [None]
  - Brain fog [None]
  - Bone pain [None]
  - Muscle spasms [None]
  - Back pain [None]
  - Dysarthria [None]
  - Decreased appetite [None]
  - Hypophagia [None]
